FAERS Safety Report 24385963 (Version 1)
Quarter: 2024Q4

REPORT INFORMATION
  Report Type: Spontaneous
  Country: US (occurrence: US)
  Receive Date: 20241001
  Receipt Date: 20241001
  Transmission Date: 20250115
  Serious: Yes (Other)
  Sender: AMGEN
  Company Number: US-AMGEN-USASP2024192346

PATIENT

DRUGS (2)
  1. ACTIMMUNE [Suspect]
     Active Substance: INTERFERON GAMMA-1B
     Indication: Ovarian cancer
     Dosage: 5-50 MICROGRAM, Q4WK [EVERY (Q)28 DAYS]
     Route: 033
  2. ACTIMMUNE [Suspect]
     Active Substance: INTERFERON GAMMA-1B
     Dosage: 50 MICROGRAM
     Route: 033

REACTIONS (4)
  - Lymphocyte count decreased [Unknown]
  - Anaemia [Unknown]
  - Abdominal pain [Unknown]
  - Ovarian cancer [Unknown]
